FAERS Safety Report 7971428-8 (Version None)
Quarter: 2011Q4

REPORT INFORMATION
  Report Type: 
  Country: None (occurrence: None)
  Receive Date: 20111212
  Receipt Date: 20111205
  Transmission Date: 20120403
  Serious: Yes (Other)
  Sender: FDA-Public Use
  Company Number: US-ALEXION PHARMACEUTICALS INC.-A201101837

PATIENT
  Age: 18 Year
  Sex: Female

DRUGS (3)
  1. FLAGYL [Concomitant]
     Dosage: UNK
     Dates: start: 20111202
  2. CEFTRIAXONE [Concomitant]
     Dosage: UNK
     Dates: start: 20111202
  3. SOLIRIS [Suspect]
     Indication: HAEMOLYTIC URAEMIC SYNDROME
     Dosage: 900 MG, UNK
     Route: 042
     Dates: start: 20111203

REACTIONS (1)
  - LEUKOCYTOSIS [None]
